FAERS Safety Report 7942686-0 (Version None)
Quarter: 2011Q4

REPORT INFORMATION
  Report Type: 
  Country: None (occurrence: None)
  Receive Date: 20111128
  Receipt Date: 20111123
  Transmission Date: 20120403
  Serious: Yes (Life-Threatening, Hospitalization)
  Sender: FDA-Public Use
  Company Number: DE-B.I. PHARMACEUTICALS,INC./RIDGEFIELD-2011-DE-06183DE

PATIENT
  Sex: Male
  Weight: 85 kg

DRUGS (10)
  1. PRADAXA [Suspect]
     Indication: THROMBOSIS
     Dosage: 220 MG
     Dates: start: 20111001, end: 20111025
  2. RAMI COMP. [Concomitant]
     Dosage: 5/25MG
     Dates: start: 20091020
  3. AMLODIPINE [Concomitant]
     Dosage: 5 MG
     Dates: start: 20110530
  4. RABEPRAZOLE SODIUM [Concomitant]
     Dosage: 10 MG
  5. CALCIMAGON [Concomitant]
     Dosage: 1000 MG
  6. PREDNISOLONE [Concomitant]
     Dosage: 5 MG
  7. DOSS [Concomitant]
     Dosage: 0.25 MCG
  8. ASPIRIN [Concomitant]
     Dosage: 100 MG
  9. TORSEMIDE [Concomitant]
     Dosage: 25 MG
  10. CARVEDILOL [Concomitant]
     Dosage: 18.75 MG
     Dates: start: 20110801

REACTIONS (6)
  - MYOCARDIAL ISCHAEMIA [None]
  - DYSPNOEA [None]
  - IMPAIRED HEALING [None]
  - RENAL IMPAIRMENT [None]
  - RENAL FAILURE ACUTE [None]
  - PULMONARY CONGESTION [None]
